FAERS Safety Report 8073162-5 (Version None)
Quarter: 2012Q1

REPORT INFORMATION
  Report Type: 
  Country: None (occurrence: None)
  Receive Date: 20120126
  Receipt Date: 20120115
  Transmission Date: 20120608
  Serious: Yes (Hospitalization)
  Sender: FDA-Public Use
  Company Number: US-ELI_LILLY_AND_COMPANY-US201112007268

PATIENT
  Age: 81 Year
  Sex: Female

DRUGS (2)
  1. FORTEO [Suspect]
     Dosage: UNK, QD
  2. FORTEO [Suspect]
     Indication: FRACTURE
     Dosage: UNK UNK, QD

REACTIONS (2)
  - OFF LABEL USE [None]
  - MALAISE [None]
